FAERS Safety Report 5143630-4 (Version None)
Quarter: 2006Q4

REPORT INFORMATION
  Report Type: 
  Country: None (occurrence: None)
  Receive Date: 20061103
  Receipt Date: 19970108
  Transmission Date: 20070319
  Serious: Yes (Death, Other)
  Sender: FDA-Public Use
  Company Number: DE-BRISTOL-MYERS SQUIBB COMPANY-13405741

PATIENT
  Age: 46 Year
  Sex: Female
  Weight: 50 kg

DRUGS (2)
  1. TAXOL [Suspect]
     Indication: HYPOPHARYNGEAL CANCER
     Route: 042
     Dates: start: 19960603, end: 19960603
  2. CARBOPLATIN [Suspect]
     Indication: HYPOPHARYNGEAL CANCER
     Dates: start: 19960603, end: 19960603

REACTIONS (4)
  - ANAEMIA [None]
  - LEUKOPENIA [None]
  - MUCOSAL INFLAMMATION [None]
  - TUMOUR HAEMORRHAGE [None]
